FAERS Safety Report 9825342 (Version 1)
Quarter: 2014Q1

REPORT INFORMATION
  Report Type: Spontaneous
  Country: US (occurrence: None)
  Receive Date: 20140115
  Receipt Date: 20140115
  Transmission Date: 20141002
  Serious: Yes (Life-Threatening, Hospitalization)
  Sender: FDA-Public Use
  Company Number: None

PATIENT
  Age: 79 Year
  Sex: Male
  Weight: 93.6 kg

DRUGS (5)
  1. INFED [Suspect]
     Indication: IRON DEFICIENCY ANAEMIA
     Route: 042
     Dates: start: 20131230
  2. IRON DEXTRAN [Concomitant]
  3. DIPHENHYDRAMINE [Concomitant]
  4. FAMOTIDINE [Concomitant]
  5. ACETAMINOPHEN [Concomitant]

REACTIONS (4)
  - Back pain [None]
  - Hypotension [None]
  - Hyperhidrosis [None]
  - Palpitations [None]
